FAERS Safety Report 4965775-1 (Version None)
Quarter: 2006Q2

REPORT INFORMATION
  Report Type: 
  Country: None (occurrence: None)
  Receive Date: 20060406
  Receipt Date: 20060406
  Transmission Date: 20061013
  Serious: Yes (Other)
  Sender: FDA-Public Use
  Company Number: None

PATIENT
  Age: 50 Year
  Sex: Female
  Weight: 58.9676 kg

DRUGS (1)
  1. PROZAC [Suspect]
     Dosage: 20 MG DAILY ORAL
     Route: 047
     Dates: start: 20050101

REACTIONS (1)
  - HALLUCINATION [None]
